FAERS Safety Report 6830571-7 (Version None)
Quarter: 2010Q3

REPORT INFORMATION
  Report Type: 
  Country: None (occurrence: None)
  Receive Date: 20100707
  Receipt Date: 20100628
  Transmission Date: 20110219
  Serious: Yes (Other)
  Sender: FDA-Public Use
  Company Number: 2010US001324

PATIENT
  Age: 76 Year
  Sex: Male
  Weight: 144 kg

DRUGS (12)
  1. VIBATIV [Suspect]
     Indication: ABSCESS
     Dosage: 10 MG/KG, IV NOS
     Route: 042
     Dates: start: 20100414, end: 20100414
  2. VIBATIV [Suspect]
     Indication: CELLULITIS
     Dosage: 10 MG/KG, IV NOS
     Route: 042
     Dates: start: 20100414, end: 20100414
  3. FENTANYL-100 [Concomitant]
  4. NEURONTIN [Concomitant]
  5. OXYCODONE AND ACETAMINOPHEN [Concomitant]
  6. WARFARIN SODIUM [Concomitant]
  7. IMDUR [Concomitant]
  8. COREG [Concomitant]
  9. ALTACE [Concomitant]
  10. FUROSEMIDE [Concomitant]
  11. ROCEPHIN [Concomitant]
  12. INVANZ (ERTAPENEM SODIUM) [Concomitant]

REACTIONS (2)
  - CYANOSIS [None]
  - ELECTROCARDIOGRAM ABNORMAL [None]
